FAERS Safety Report 6682245-3 (Version None)
Quarter: 2010Q2

REPORT INFORMATION
  Report Type: 
  Country: None (occurrence: None)
  Receive Date: 20100415
  Receipt Date: 20100405
  Transmission Date: 20101027
  Serious: No
  Sender: FDA-Public Use
  Company Number: 2009BI031108

PATIENT
  Age: 44 Year
  Sex: Female

DRUGS (3)
  1. TYSABRI [Suspect]
     Indication: MULTIPLE SCLEROSIS
     Route: 042
     Dates: start: 20050228, end: 20050228
  2. TYSABRI [Suspect]
     Route: 042
     Dates: start: 20080121, end: 20081024
  3. TYSABRI [Suspect]
     Route: 042
     Dates: start: 20090619, end: 20090814

REACTIONS (11)
  - ABDOMINAL DISCOMFORT [None]
  - ANXIETY [None]
  - BRONCHITIS [None]
  - COORDINATION ABNORMAL [None]
  - DECREASED IMMUNE RESPONSIVENESS [None]
  - FUNGAL INFECTION [None]
  - IMPAIRED HEALING [None]
  - PHOTOSENSITIVITY REACTION [None]
  - SINUSITIS [None]
  - TONSILLITIS [None]
  - WHITE BLOOD CELL DISORDER [None]
